FAERS Safety Report 4886753-7 (Version None)
Quarter: 2006Q1

REPORT INFORMATION
  Report Type: 
  Country: None (occurrence: None)
  Receive Date: 20060120
  Receipt Date: 20051102
  Transmission Date: 20060701
  Serious: Yes (Other)
  Sender: FDA-Public Use
  Company Number: DE-ROCHE-423344

PATIENT
  Sex: Female

DRUGS (3)
  1. PEGASYS [Suspect]
     Dosage: DOSAGE REGIMEN: 180MCG/WEEK
     Dates: start: 20050623
  2. COPEGUS [Suspect]
     Dates: start: 20050623
  3. AMANTADINE HCL [Concomitant]
     Dates: start: 20050623

REACTIONS (3)
  - PREGNANCY OF PARTNER [None]
  - STILLBIRTH [None]
  - TRANSMISSION OF DRUG VIA SEMEN [None]
